FAERS Safety Report 5285608-6 (Version None)
Quarter: 2007Q1

REPORT INFORMATION
  Report Type: 
  Country: None (occurrence: None)
  Receive Date: 20070116
  Receipt Date: 20061129
  Transmission Date: 20070707
  Serious: No
  Sender: FDA-Public Use
  Company Number: 2006SP004198

PATIENT
  Age: 54 Year
  Sex: Female
  Weight: 52.1637 kg

DRUGS (5)
  1. LUNESTA [Suspect]
     Indication: INSOMNIA
     Dosage: 3 MG; ORAL
     Route: 048
     Dates: start: 20061124, end: 20061125
  2. LEVOTHYROXINE SODIUM [Concomitant]
  3. ZYRTEC [Concomitant]
  4. PREMPRO [Concomitant]
  5. CALCIUM WITH VITAMIN D [Concomitant]

REACTIONS (4)
  - COUGH [None]
  - DYSGEUSIA [None]
  - POOR QUALITY SLEEP [None]
  - RETCHING [None]
